FAERS Safety Report 4816747-9 (Version None)
Quarter: 2005Q4

REPORT INFORMATION
  Report Type: 
  Country: None (occurrence: None)
  Receive Date: 20051101
  Receipt Date: 20050720
  Transmission Date: 20060501
  Serious: No
  Sender: FDA-Public Use
  Company Number: 20050504989

PATIENT
  Age: 24 Year
  Sex: Female
  Weight: 59.1 kg

DRUGS (4)
  1. AMOXICILLIN [Suspect]
     Indication: BRONCHITIS
     Route: 048
  2. ORTHO EVRA [Suspect]
     Indication: CONTRACEPTION
     Route: 062
  3. PENICILLIN [Suspect]
     Indication: BRONCHITIS
     Route: 065
  4. VITAMINS [Concomitant]

REACTIONS (4)
  - BRONCHITIS [None]
  - HYPERSENSITIVITY [None]
  - METRORRHAGIA [None]
  - RASH [None]
